FAERS Safety Report 8665150 (Version 2)
Quarter: 2012Q4

REPORT INFORMATION
  Report Type: Spontaneous
  Country: US (occurrence: None)
  Receive Date: 20120628
  Receipt Date: 20120831
  Transmission Date: 20130627
  Serious: Yes (Death)
  Sender: FDA-Public Use
  Company Number: ALK_02662_2012

PATIENT
  Age: 39 Year
  Sex: Female

DRUGS (6)
  1. VIVITROL [Suspect]
     Indication: ALCOHOLISM
     Dosage: (380 MG 1X/MONTH INTRAMUSCULAR)
     Route: 030
     Dates: start: 20120229
  2. BUSPAR (BUSPIRONE HYDROCHLORIDE) TABLET [Concomitant]
  3. ZOLOFT (SERTRALINE HYDROCHLORIDE) TABLET [Concomitant]
  4. WELLBUTRIN (BUPROPION HYDROCHLORIDE) SLOW RELEASE TABLET [Concomitant]
  5. TRAZODONE (TRAZODONE) TABLET [Concomitant]
  6. TRILEPTAL (OXCARBAZEPINE) TABLET [Concomitant]

REACTIONS (2)
  - Death [None]
  - Gun shot wound [None]
